FAERS Safety Report 8424167-3 (Version None)
Quarter: 2012Q2

REPORT INFORMATION
  Report Type: 
  Country: None (occurrence: None)
  Receive Date: 20120608
  Receipt Date: 20120416
  Transmission Date: 20120825
  Serious: No
  Sender: FDA-Public Use
  Company Number: US-ASTRAZENECA-2012SE17948

PATIENT
  Age: 51 Year
  Sex: Male
  Weight: 93 kg

DRUGS (2)
  1. ALLERGY MEDICATION [Concomitant]
  2. PULMICORT FLEXHALER [Suspect]
     Indication: ASTHMA
     Dosage: ONE PUFF DAILY
     Route: 055
     Dates: start: 20090101

REACTIONS (3)
  - CIRCUMSTANCE OR INFORMATION CAPABLE OF LEADING TO MEDICATION ERROR [None]
  - ASTHMA [None]
  - INTENTIONAL DRUG MISUSE [None]
